FAERS Safety Report 8810970 (Version 1)
Quarter: 2012Q4

REPORT INFORMATION
  Report Type: 
  Country: CA (occurrence: CA)
  Receive Date: 20120927
  Receipt Date: 20120927
  Transmission Date: 20130627
  Serious: Yes (Hospitalization)
  Sender: FDA-Public Use
  Company Number: CA-RANBAXY-2012US-60399

PATIENT
  Sex: Female

DRUGS (2)
  1. PARACETAMOL/CODEINE PHOSPHATE [Suspect]
     Indication: EXPOSURE DURING BREAST FEEDING
     Dosage: Three times per day (1.4 mg/kg)
     Route: 063
  2. CODEINE [Suspect]
     Indication: EXPOSURE DURING BREAST FEEDING
     Dosage: Increased to 2.1 mg/kg
     Route: 063

REACTIONS (3)
  - Respiratory arrest [Recovered/Resolved]
  - Lethargy [Recovered/Resolved]
  - Exposure during breast feeding [Recovered/Resolved]
